FAERS Safety Report 6106806-5 (Version None)
Quarter: 2009Q1

REPORT INFORMATION
  Report Type: 
  Country: None (occurrence: None)
  Receive Date: 20090304
  Receipt Date: 20070315
  Transmission Date: 20090719
  Serious: Yes (Hospitalization, Other)
  Sender: FDA-Public Use
  Company Number: 530#6#2007-00023

PATIENT
  Sex: Female
  Weight: 61 kg

DRUGS (12)
  1. NEUPRO [Suspect]
     Indication: PARKINSON'S DISEASE
     Dosage: (2 MG QD TRANSDERMAL), (4 MG QD TRANSDERMAL), (6 MG QD TRANSDERMAL)
     Route: 062
     Dates: start: 20060721, end: 20060727
  2. NEUPRO [Suspect]
     Indication: PARKINSON'S DISEASE
     Dosage: (2 MG QD TRANSDERMAL), (4 MG QD TRANSDERMAL), (6 MG QD TRANSDERMAL)
     Route: 062
     Dates: start: 20060728, end: 20061024
  3. NEUPRO [Suspect]
     Indication: PARKINSON'S DISEASE
     Dosage: (2 MG QD TRANSDERMAL), (4 MG QD TRANSDERMAL), (6 MG QD TRANSDERMAL)
     Route: 062
     Dates: start: 20061025, end: 20070110
  4. PK-MERZ /00055903/ [Concomitant]
  5. MADOPAR /00349201/ [Concomitant]
  6. REQUIP [Concomitant]
  7. LISINOPRIL [Concomitant]
  8. CIPRALEX /01588501/ [Concomitant]
  9. ACETYLSALICYLIC ACID [Concomitant]
  10. CANDESARTAN CILEXETIL W/HYDROCHLOROTHIAZIDE [Concomitant]
  11. DELIX /00885601/ [Concomitant]
  12. QUETIAPINE FUMARATE [Concomitant]

REACTIONS (2)
  - CARDIOVASCULAR DISORDER [None]
  - GAMMOPATHY [None]
